FAERS Safety Report 19503198 (Version 1)
Quarter: 2021Q3

REPORT INFORMATION
  Report Type: Spontaneous
  Country: DE (occurrence: DE)
  Receive Date: 20210707
  Receipt Date: 20210707
  Transmission Date: 20211014
  Serious: Yes (Other)
  Sender: FDA-Public Use
  Company Number: DE-ALXN-A202106898

PATIENT
  Age: 14 Year
  Sex: Male
  Weight: 33.1 kg

DRUGS (2)
  1. STRENSIQ [Suspect]
     Active Substance: ASFOTASE ALFA
     Indication: HYPOPHOSPHATASIA
     Dosage: UNK
     Route: 065
     Dates: start: 20191128
  2. STRENSIQ [Suspect]
     Active Substance: ASFOTASE ALFA
     Dosage: 60 MG, 3X/WEEK
     Route: 065
     Dates: start: 20201009, end: 20201010

REACTIONS (5)
  - Growth retardation [Not Recovered/Not Resolved]
  - Poor quality sleep [Recovered/Resolved]
  - Malaise [Recovered/Resolved]
  - Drug ineffective [Not Recovered/Not Resolved]
  - Injection site reaction [Recovered/Resolved]
